FAERS Safety Report 8990489 (Version 1)
Quarter: 2012Q4

REPORT INFORMATION
  Report Type: 
  Country: FR (occurrence: FR)
  Receive Date: 20121228
  Receipt Date: 20121228
  Transmission Date: 20130627
  Serious: Yes (Hospitalization)
  Sender: FDA-Public Use
  Company Number: FR-SANOFI-AVENTIS-2012SA094131

PATIENT
  Age: 70 Year
  Sex: Female

DRUGS (9)
  1. TAXOTERE [Suspect]
     Indication: BREAST DUCTAL CANCER INFILTRATING
     Route: 042
     Dates: start: 200304, end: 200308
  2. XELODA [Suspect]
     Indication: BREAST DUCTAL CANCER INFILTRATING
     Dosage: frequency- 1500 mf twice daily for 14 days every cycle
     Route: 048
     Dates: start: 20120624, end: 20120910
  3. VINORELBINE [Suspect]
     Indication: BREAST DUCTAL CANCER INFILTRATING
     Dosage: frequency- on day 1 and day 8 every cycle
     Route: 048
     Dates: start: 20120415, end: 20120910
  4. FULVESTRANT [Suspect]
     Indication: BREAST DUCTAL CANCER INFILTRATING
     Dosage: dose- 1 injection once monthly
     Route: 030
     Dates: start: 201010
  5. FARMORUBICINE [Suspect]
     Indication: BREAST DUCTAL CANCER INFILTRATING
     Route: 042
     Dates: start: 200304, end: 200308
  6. TAMOXIFEN [Concomitant]
     Indication: BREAST DUCTAL CANCER INFILTRATING
     Route: 048
     Dates: start: 200312, end: 200402
  7. ANASTROZOLE [Concomitant]
     Indication: BREAST DUCTAL CANCER INFILTRATING
     Route: 048
     Dates: start: 200402, end: 200704
  8. AROMASIN [Concomitant]
     Indication: BREAST DUCTAL CANCER INFILTRATING
     Route: 048
     Dates: start: 200704, end: 201010
  9. PAMIDRONATE DISODIUM [Concomitant]
     Indication: BONE MINERAL CONTENT DECREASED
     Route: 042
     Dates: start: 201010

REACTIONS (3)
  - Cardiomyopathy [Recovering/Resolving]
  - Cardiac failure [Recovering/Resolving]
  - Ejection fraction decreased [Recovering/Resolving]
